FAERS Safety Report 19169156 (Version 1)
Quarter: 2021Q2

REPORT INFORMATION
  Report Type: Report from Study
  Country: None (occurrence: BR)
  Receive Date: 20210422
  Receipt Date: 20210422
  Transmission Date: 20210717
  Serious: Yes (Other)
  Sender: FDA-Public Use
  Company Number: BR-UNICHEM PHARMACEUTICALS (USA) INC-UCM202104-000333

PATIENT
  Age: 50 Year
  Sex: Female

DRUGS (1)
  1. ALLOPURINOL. [Suspect]
     Active Substance: ALLOPURINOL
     Indication: PRODUCT USED FOR UNKNOWN INDICATION
     Dosage: UNKNOWN

REACTIONS (2)
  - Drug reaction with eosinophilia and systemic symptoms [Unknown]
  - Acute generalised exanthematous pustulosis [Unknown]
